FAERS Safety Report 5278856-2 (Version None)
Quarter: 2007Q1

REPORT INFORMATION
  Report Type: 
  Country: None (occurrence: None)
  Receive Date: 20070321
  Receipt Date: 20070307
  Transmission Date: 20070707
  Serious: Yes (Death, Hospitalization)
  Sender: FDA-Public Use
  Company Number: 23009M02SWE

PATIENT
  Age: 54 Year
  Sex: Male

DRUGS (8)
  1. REBIF [Suspect]
     Indication: MULTIPLE SCLEROSIS
     Dosage: 44 MCG, 3 IN 1 WEEKS, SUBCUTANEOUS
     Route: 058
     Dates: start: 20010605, end: 20011031
  2. PHENOXYMETHYLPENICILLIN [Suspect]
     Indication: ARTHROPOD BITE
     Dosage: 1 G, 1 IN 1 DAYS, PER ORAL
     Route: 048
     Dates: start: 20011003, end: 20011010
  3. GANCICLOVIR [Suspect]
     Indication: CYTOMEGALOVIRUS INFECTION
     Dosage: 200 MG, DAYS
     Dates: start: 20020108, end: 20020109
  4. GANCICLOVIR [Suspect]
     Indication: VIRAL INFECTION
     Dosage: 200 MG, DAYS
     Dates: start: 20020108, end: 20020109
  5. CELLCEPT [Suspect]
     Indication: PROPHYLAXIS
     Dosage: 2 G, DAYS, ORAL
     Route: 048
     Dates: start: 20011221, end: 20020113
  6. PARACETAMOL [Concomitant]
  7. VANCOMYCIN HCL [Concomitant]
  8. AMPHOTERICIN B [Concomitant]

REACTIONS (38)
  - ACUTE HEPATIC FAILURE [None]
  - ALCOHOL USE [None]
  - ARTERIOSCLEROSIS CORONARY ARTERY [None]
  - BILE DUCT STENOSIS [None]
  - BONE MARROW TOXICITY [None]
  - CANDIDIASIS [None]
  - CHOLANGITIS [None]
  - CHOLESTASIS [None]
  - COMA HEPATIC [None]
  - DRUG INTERACTION [None]
  - FUNGAL PERITONITIS [None]
  - GALLBLADDER OEDEMA [None]
  - HAEMOPTYSIS [None]
  - HEPATIC NECROSIS [None]
  - HEPATOCELLULAR DAMAGE [None]
  - HEPATOTOXICITY [None]
  - HYPOTENSION [None]
  - INTERNATIONAL NORMALISED RATIO INCREASED [None]
  - LIVER TRANSPLANT [None]
  - LOSS OF CONSCIOUSNESS [None]
  - MELAENA [None]
  - METABOLIC ACIDOSIS [None]
  - MULTI-ORGAN FAILURE [None]
  - NO THERAPEUTIC RESPONSE [None]
  - PANCREATIC NECROSIS [None]
  - PANCREATITIS ACUTE [None]
  - PANCREATITIS HAEMORRHAGIC [None]
  - PANCYTOPENIA [None]
  - POST PROCEDURAL COMPLICATION [None]
  - PSEUDOMONAS INFECTION [None]
  - PULMONARY OEDEMA [None]
  - SEPSIS [None]
  - SHOCK [None]
  - TACHYCARDIA [None]
  - TACHYPNOEA [None]
  - TRANSPLANT REJECTION [None]
  - VENTRICULAR HYPERTROPHY [None]
  - VOMITING [None]
